FAERS Safety Report 6757934-2 (Version None)
Quarter: 2010Q2

REPORT INFORMATION
  Report Type: 
  Country: None (occurrence: None)
  Receive Date: 20100607
  Receipt Date: 20100527
  Transmission Date: 20101027
  Serious: Yes (Death)
  Sender: FDA-Public Use
  Company Number: ES-BRISTOL-MYERS SQUIBB COMPANY-15134208

PATIENT
  Age: 88 Year
  Sex: Male

DRUGS (1)
  1. ERBITUX [Suspect]
     Dosage: ERBITUX  5MG/ML
     Route: 042

REACTIONS (1)
  - DIARRHOEA [None]
